FAERS Safety Report 10269421 (Version 5)
Quarter: 2014Q3

REPORT INFORMATION
  Report Type: Spontaneous
  Country: US (occurrence: US)
  Receive Date: 20140701
  Receipt Date: 20140909
  Transmission Date: 20150326
  Serious: No
  Sender: FDA-Public Use
  Company Number: US-SHIRE-US201403522

PATIENT
  Age: 21 Year
  Sex: Male
  Weight: 72.56 kg

DRUGS (2)
  1. PENTASA [Suspect]
     Active Substance: MESALAMINE
     Indication: CROHN^S DISEASE
     Dosage: 250 MG, OTHER(8-250 MG CAPSULES DAILY)
     Route: 048
     Dates: start: 20140619, end: 20140624
  2. PREDNISONE. [Concomitant]
     Active Substance: PREDNISONE
     Indication: CROHN^S DISEASE
     Dosage: 20 MG, 1X/DAY:QD
     Route: 048
     Dates: start: 201403

REACTIONS (4)
  - Malaise [Recovered/Resolved]
  - Crohn^s disease [Recovered/Resolved]
  - Product quality issue [Unknown]
  - Off label use [Recovered/Resolved]

NARRATIVE: CASE EVENT DATE: 201406
